FAERS Safety Report 7077406-8 (Version None)
Quarter: 2010Q4

REPORT INFORMATION
  Report Type: 
  Country: None (occurrence: None)
  Receive Date: 20101101
  Receipt Date: 20101021
  Transmission Date: 20110411
  Serious: Yes (Death, Hospitalization)
  Sender: FDA-Public Use
  Company Number: US-JNJFOC-20101006094

PATIENT
  Sex: Female

DRUGS (2)
  1. TYLENOL EXTRA STRENGTH [Suspect]
     Route: 048
  2. TYLENOL EXTRA STRENGTH [Suspect]
     Indication: ARTHRITIS
     Route: 048

REACTIONS (2)
  - LUNG INFECTION PSEUDOMONAL [None]
  - PRODUCT QUALITY ISSUE [None]
